FAERS Safety Report 7660137-0 (Version None)
Quarter: 2011Q3

REPORT INFORMATION
  Report Type: 
  Country: None (occurrence: None)
  Receive Date: 20110805
  Receipt Date: 20110727
  Transmission Date: 20111222
  Serious: Yes (Hospitalization)
  Sender: FDA-Public Use
  Company Number: JP-B.I. PHARMACEUTICALS,INC./RIDGEFIELD-2011-BP-14594NB

PATIENT
  Sex: Male
  Weight: 60 kg

DRUGS (2)
  1. PRADAXA [Suspect]
     Indication: PROPHYLAXIS
     Dosage: 220 MG
     Route: 048
     Dates: start: 20110523
  2. LANSOPRAZOLE [Concomitant]
     Indication: DYSPEPSIA
     Dosage: 15 MG
     Route: 048
     Dates: start: 20110523

REACTIONS (2)
  - EMBOLIC STROKE [None]
  - TRANSIENT ISCHAEMIC ATTACK [None]
